FAERS Safety Report 6461852-7 (Version None)
Quarter: 2009Q4

REPORT INFORMATION
  Report Type: 
  Country: None (occurrence: None)
  Receive Date: 20091130
  Receipt Date: 20091119
  Transmission Date: 20100525
  Serious: Yes (Other)
  Sender: FDA-Public Use
  Company Number: PHFR2007GB01059

PATIENT
  Age: 45 Year
  Sex: Male

DRUGS (5)
  1. TERBINAFINE HYDROCHLORIDE [Suspect]
     Indication: FUNGAL SKIN INFECTION
     Dosage: 250 MG, QD
     Route: 048
     Dates: start: 20060413
  2. TERBINAFINE HYDROCHLORIDE [Suspect]
     Dosage: 250 MG, BID
     Dates: start: 20060512, end: 20060525
  3. BETNOVATE [Concomitant]
     Dosage: UNK
     Dates: start: 20060321
  4. DAKTACORT [Concomitant]
     Dosage: UNK
     Dates: start: 20050809
  5. MOVELAT [Concomitant]
     Dosage: UNK
     Dates: start: 20050419

REACTIONS (3)
  - DISTURBANCE IN ATTENTION [None]
  - HISTOLOGY ABNORMAL [None]
  - ROAD TRAFFIC ACCIDENT [None]
